FAERS Safety Report 10375000 (Version 1)
Quarter: 2014Q3

REPORT INFORMATION
  Report Type: Spontaneous
  Country: US (occurrence: None)
  Receive Date: 20140808
  Receipt Date: 20140808
  Transmission Date: 20150326
  Serious: Yes (Other)
  Sender: FDA-Public Use
  Company Number: None

PATIENT
  Age: 34 Year
  Sex: Female

DRUGS (1)
  1. ENBREL [Suspect]
     Active Substance: ETANERCEPT
     Indication: PSORIASIS
     Dosage: 50MG BIW X 3MOS SQ
     Route: 058
     Dates: start: 20140516, end: 201407

REACTIONS (4)
  - Drug ineffective [None]
  - Weight decreased [None]
  - Facial nerve disorder [None]
  - Alopecia [None]

NARRATIVE: CASE EVENT DATE: 20140516
